FAERS Safety Report 12398159 (Version 1)
Quarter: 2016Q2

REPORT INFORMATION
  Report Type: Spontaneous
  Country: GR (occurrence: GR)
  Receive Date: 20160524
  Receipt Date: 20160524
  Transmission Date: 20160815
  Serious: Yes (Death)
  Sender: FDA-Public Use
  Company Number: PHHY2016GR070421

PATIENT
  Age: 76 Year
  Sex: Female
  Weight: 64.4 kg

DRUGS (7)
  1. ACCUPRON [Concomitant]
     Indication: HYPERTENSION
     Dosage: UNK
     Route: 048
     Dates: start: 2011, end: 20160208
  2. DEPON [Concomitant]
     Active Substance: ACETAMINOPHEN
     Indication: MUSCULOSKELETAL PAIN
     Dosage: 1 DF, QD
     Route: 048
     Dates: start: 20160130, end: 20160208
  3. ARANESP [Concomitant]
     Active Substance: DARBEPOETIN ALFA
     Indication: MYELODYSPLASTIC SYNDROME
     Dosage: 1 DF, QW
     Route: 048
     Dates: start: 2013, end: 201602
  4. SEROPRAM [Concomitant]
     Active Substance: CITALOPRAM HYDROBROMIDE
     Indication: ANXIETY DISORDER
     Dosage: UNK
     Route: 048
     Dates: start: 201512, end: 20160208
  5. VOLTAREN [Suspect]
     Active Substance: DICLOFENAC SODIUM
     Indication: MUSCULOSKELETAL PAIN
     Dosage: 1 DF, QD
     Route: 030
     Dates: start: 20160204, end: 20160206
  6. DYNASTAT [Suspect]
     Active Substance: PARECOXIB SODIUM
     Indication: MUSCULOSKELETAL PAIN
     Dosage: 1 DF, QD
     Route: 030
     Dates: start: 20160201, end: 20160203
  7. VASTAREL [Concomitant]
     Active Substance: TRIMETAZIDINE DIHYDROCHLORIDE
     Indication: VERTIGO
     Dosage: 1 DF, QD
     Route: 048
     Dates: start: 201512, end: 20160208

REACTIONS (2)
  - Hepatitis acute [Fatal]
  - Hepatic failure [Fatal]

NARRATIVE: CASE EVENT DATE: 20160208
